FAERS Safety Report 9882572 (Version 1)
Quarter: 2014Q1

REPORT INFORMATION
  Report Type: Spontaneous
  Country: NL (occurrence: NL)
  Receive Date: 20140207
  Receipt Date: 20140207
  Transmission Date: 20141002
  Serious: Yes (Other)
  Sender: FDA-Public Use
  Company Number: NL-ACTAVIS-2014-01862

PATIENT
  Age: 70 Year
  Sex: Female

DRUGS (1)
  1. DICLOFENACNATRIUM ACTAVIS [Suspect]
     Indication: PRODUCT USED FOR UNKNOWN INDICATION
     Dosage: 1 DF, UNKNOWN -DOSERING NIET BEKEND /DOSE NOT KNOWN
     Route: 048
     Dates: start: 201305, end: 201305

REACTIONS (5)
  - Amnesia [Recovered/Resolved]
  - Disorientation [Recovered/Resolved]
  - Panic attack [Recovered/Resolved]
  - Fatigue [Unknown]
  - Therapeutic response unexpected with drug substitution [Recovered/Resolved]
